FAERS Safety Report 7121182-7 (Version None)
Quarter: 2010Q4

REPORT INFORMATION
  Report Type: 
  Country: None (occurrence: None)
  Receive Date: 20101124
  Receipt Date: 20101111
  Transmission Date: 20110411
  Serious: Yes (Other)
  Sender: FDA-Public Use
  Company Number: PHFR2010GB05369

PATIENT
  Sex: Male

DRUGS (3)
  1. TEGRETOL [Suspect]
     Dosage: 200 MG / DAY
  2. TEGRETOL [Suspect]
     Dosage: 400 MG / DAY
  3. PICOLAX [Concomitant]

REACTIONS (1)
  - GASTROINTESTINAL DISORDER [None]
